FAERS Safety Report 10056595 (Version 2)
Quarter: 2014Q2

REPORT INFORMATION
  Report Type: Report from Study
  Country: US (occurrence: US)
  Receive Date: 20140403
  Receipt Date: 20140422
  Transmission Date: 20141212
  Serious: Yes (Hospitalization)
  Sender: FDA-Public Use
  Company Number: US-ABBVIE-14P-163-1218376-00

PATIENT
  Age: 47 Year
  Sex: Female

DRUGS (7)
  1. HUMIRA [Suspect]
     Indication: PSORIASIS
  2. HUMIRA [Suspect]
     Dates: start: 20140228
  3. EFFEXOR [Concomitant]
     Indication: BIPOLAR DISORDER
  4. BUSPAR [Concomitant]
     Indication: ANXIETY
  5. PRAVACHOL [Concomitant]
     Indication: BLOOD CHOLESTEROL INCREASED
  6. LISINOPRIL [Concomitant]
     Indication: HYPERTENSION
  7. OMEPRAZOLE [Concomitant]
     Indication: GASTROOESOPHAGEAL REFLUX DISEASE

REACTIONS (4)
  - Emotional disorder [Recovering/Resolving]
  - Injection site pain [Not Recovered/Not Resolved]
  - Ear infection [Unknown]
  - Psoriasis [Unknown]
